FAERS Safety Report 21562940 (Version 1)
Quarter: 2022Q4

REPORT INFORMATION
  Report Type: Spontaneous
  Country: US (occurrence: None)
  Receive Date: 20221104
  Receipt Date: 20221104
  Transmission Date: 20230113
  Serious: No
  Sender: FDA-Public Use
  Company Number: None

PATIENT
  Age: 31 Year
  Sex: Female
  Weight: 111.13 kg

DRUGS (5)
  1. FLUOXETINE [Suspect]
     Active Substance: FLUOXETINE HYDROCHLORIDE
  2. CARIPRAZINE [Suspect]
     Active Substance: CARIPRAZINE
  3. HYDROXYZINE PAMOATE [Suspect]
     Active Substance: HYDROXYZINE PAMOATE
  4. QUETIAPINE [Suspect]
     Active Substance: QUETIAPINE
  5. INSULIN NOS [Suspect]
     Active Substance: INSULIN NOS

REACTIONS (1)
  - Gestational diabetes [None]

NARRATIVE: CASE EVENT DATE: 20210612
